FAERS Safety Report 8361474-7 (Version None)
Quarter: 2012Q2

REPORT INFORMATION
  Report Type: 
  Country: None (occurrence: None)
  Receive Date: 20120515
  Receipt Date: 20120503
  Transmission Date: 20120825
  Serious: Yes (Other)
  Sender: FDA-Public Use
  Company Number: SE-BRISTOL-MYERS SQUIBB COMPANY-16571689

PATIENT
  Age: 32 Year
  Sex: Female

DRUGS (1)
  1. MITOTANE [Suspect]
     Indication: PITUITARY-DEPENDENT CUSHING'S SYNDROME

REACTIONS (5)
  - CAESAREAN SECTION [None]
  - PREGNANCY [None]
  - NORMAL NEWBORN [None]
  - NELSON'S SYNDROME [None]
  - MATERNAL EXPOSURE TIMING UNSPECIFIED [None]
